FAERS Safety Report 7438521-X (Version None)
Quarter: 2011Q2

REPORT INFORMATION
  Report Type: 
  Country: None (occurrence: None)
  Receive Date: 20110426
  Receipt Date: 20110414
  Transmission Date: 20111010
  Serious: Yes (Hospitalization)
  Sender: FDA-Public Use
  Company Number: PHHY2011NL32058

PATIENT
  Sex: Female

DRUGS (2)
  1. SODIUM CHLORIDE [Concomitant]
     Dosage: 100 ML, UNK
  2. ZOMETA [Suspect]
     Dosage: 4 MG, EVERY 4 WEEKS
     Dates: start: 20101201, end: 20110308

REACTIONS (3)
  - FLUID OVERLOAD [None]
  - PERICARDIAL EFFUSION [None]
  - GENERAL PHYSICAL HEALTH DETERIORATION [None]
